FAERS Safety Report 4843713-X (Version None)
Quarter: 2005Q4

REPORT INFORMATION
  Report Type: 
  Country: None (occurrence: None)
  Receive Date: 20051129
  Receipt Date: 20051112
  Transmission Date: 20060501
  Serious: Yes (Hospitalization)
  Sender: FDA-Public Use
  Company Number: GR200511001291

PATIENT
  Age: 17 Year
  Sex: Male

DRUGS (1)
  1. OLANZAPINE [Suspect]
     Indication: BIPOLAR DISORDER
     Dosage: 5 MG DAILY 1/D)
     Dates: start: 20050918, end: 20050920

REACTIONS (8)
  - BLOOD URIC ACID INCREASED [None]
  - HYPOTENSION [None]
  - LEUKOPENIA [None]
  - LYMPHOCYTE PERCENTAGE INCREASED [None]
  - NEUTROPHIL PERCENTAGE DECREASED [None]
  - ORAL INTAKE REDUCED [None]
  - SOMNOLENCE [None]
  - THROMBOCYTOPENIA [None]
